FAERS Safety Report 12577335 (Version 3)
Quarter: 2018Q3

REPORT INFORMATION
  Report Type: Spontaneous
  Country: US (occurrence: US)
  Receive Date: 20160720
  Receipt Date: 20180725
  Transmission Date: 20181010
  Serious: Yes (Other)
  Sender: FDA-Public Use
  Company Number: US-BAYER-2016-140899

PATIENT
  Age: 37 Year
  Sex: Female
  Weight: 64.85 kg

DRUGS (3)
  1. CRYSELLE [Concomitant]
     Active Substance: ETHINYL ESTRADIOL\NORGESTREL
     Dosage: UNK
  2. LISINOPRIL. [Concomitant]
     Active Substance: LISINOPRIL
     Dosage: 5 MG, UNK
     Route: 048
  3. MIRENA [Suspect]
     Active Substance: LEVONORGESTREL
     Indication: CONTRACEPTION
     Dosage: 20 MCG/24HR, CONT
     Route: 015
     Dates: start: 20160706, end: 20160718

REACTIONS (7)
  - Post procedural haemorrhage [None]
  - Abdominal discomfort [None]
  - Uterine perforation [Recovered/Resolved]
  - Abdominal pain lower [None]
  - Genital haemorrhage [Not Recovered/Not Resolved]
  - Genital haemorrhage [None]
  - Pelvic pain [None]

NARRATIVE: CASE EVENT DATE: 201607
